FAERS Safety Report 14806478 (Version 1)
Quarter: 2018Q2

REPORT INFORMATION
  Report Type: Spontaneous
  Country: DE (occurrence: DE)
  Receive Date: 20180425
  Receipt Date: 20180425
  Transmission Date: 20180711
  Serious: Yes (Hospitalization, Other)
  Sender: FDA-Public Use
  Company Number: DE-PFIZER INC-2018168146

PATIENT
  Age: 83 Year
  Sex: Female

DRUGS (9)
  1. AMLODIPINE [Concomitant]
     Active Substance: AMLODIPINE BESYLATE
     Dosage: 10 MG, UNK
     Route: 048
  2. VALSARTAN/HYDROCHLOROTHIAZIDE [Suspect]
     Active Substance: HYDROCHLOROTHIAZIDE\VALSARTAN
     Dosage: UNK, QD
     Route: 048
  3. OPIPRAMOL [Concomitant]
     Active Substance: OPIPRAMOL
     Dosage: 100 MG, UNK
     Route: 048
  4. PANTOPRAZOLE [Suspect]
     Active Substance: PANTOPRAZOLE
     Dosage: 20 MG, QD
     Route: 048
  5. SULPIRIDE [Concomitant]
     Active Substance: SULPIRIDE
     Dosage: 100 MG, UNK
     Route: 048
  6. ESTRIOL [Concomitant]
     Active Substance: ESTRIOL
     Dosage: 0.5 MG, QD
     Route: 067
  7. BISOPROLOL [Concomitant]
     Active Substance: BISOPROLOL
     Dosage: 10 MG, QD
     Route: 048
  8. LAMOTRIGINE. [Concomitant]
     Active Substance: LAMOTRIGINE
     Dosage: 25 MG, QD
     Route: 048
  9. TORASEMIDE [Suspect]
     Active Substance: TORSEMIDE
     Dosage: 5 MG, QD
     Route: 048

REACTIONS (6)
  - Gait disturbance [Unknown]
  - Seizure [Unknown]
  - Hyponatraemia [Unknown]
  - Confusional state [Unknown]
  - Psychomotor retardation [Unknown]
  - Fatigue [Unknown]
